FAERS Safety Report 6045006-4 (Version None)
Quarter: 2009Q1

REPORT INFORMATION
  Report Type: 
  Country: None (occurrence: None)
  Receive Date: 20090116
  Receipt Date: 20090116
  Transmission Date: 20090719
  Serious: Yes (Hospitalization)
  Sender: FDA-Public Use
  Company Number: None

PATIENT
  Sex: Male
  Weight: 55 kg

DRUGS (4)
  1. CARBOPLATIN [Suspect]
     Indication: LARYNGEAL CANCER
     Dosage: AUC6 Q4WKS
     Dates: start: 20080909
  2. TAXOL [Suspect]
     Indication: LARYNGEAL CANCER
     Dosage: 100MG/M2 QWK
     Dates: start: 20080909, end: 20080916
  3. CETUXIMAB [Suspect]
     Indication: LARYNGEAL CANCER
     Dosage: 400MG/M2 250MG/M2
     Dates: start: 20080909
  4. CETUXIMAB [Suspect]
     Indication: LARYNGEAL CANCER
     Dosage: 400MG/M2 250MG/M2
     Dates: start: 20080916

REACTIONS (1)
  - PNEUMONIA [None]
